FAERS Safety Report 8848579 (Version 3)
Quarter: 2012Q4

REPORT INFORMATION
  Report Type: 
  Country: JP (occurrence: JP)
  Receive Date: 20121018
  Receipt Date: 20121031
  Transmission Date: 20130627
  Serious: Yes (Hospitalization)
  Sender: FDA-Public Use
  Company Number: JP-GLAXOSMITHKLINE-B0838301A

PATIENT
  Age: 97 None
  Sex: Female
  Weight: 45 kg

DRUGS (5)
  1. VALTREX [Suspect]
     Indication: HERPES ZOSTER
     Dosage: 1000MG Three times per day
     Route: 048
     Dates: start: 20121002, end: 20121005
  2. KISALART L [Concomitant]
     Dosage: 80MG Per day
     Route: 048
  3. CHINESE MEDICINE [Concomitant]
     Dosage: 1IUAX Three times per day
     Route: 048
  4. K-SUPPLY [Concomitant]
     Dosage: 600MG Per day
     Route: 048
  5. MAGMITT [Concomitant]
     Dosage: 1320MG Twice per day
     Route: 048

REACTIONS (6)
  - Altered state of consciousness [Recovered/Resolved]
  - Renal impairment [Recovered/Resolved]
  - Encephalopathy [Unknown]
  - Eyelid function disorder [Unknown]
  - Blood urea increased [Unknown]
  - Blood creatinine increased [Unknown]
